FAERS Safety Report 10178404 (Version 2)
Quarter: 2014Q2

REPORT INFORMATION
  Report Type: Spontaneous
  Country: US (occurrence: US)
  Receive Date: 20140519
  Receipt Date: 20140519
  Transmission Date: 20141212
  Serious: No
  Sender: FDA-Public Use
  Company Number: US-DRREDDYS-USA/USA/13/0029300

PATIENT
  Age: 48 Year
  Sex: Female
  Weight: 77.63 kg

DRUGS (3)
  1. RANITIDINE [Suspect]
     Indication: GASTROOESOPHAGEAL REFLUX DISEASE
     Route: 048
     Dates: start: 20130426
  2. HYDROCODONE/ACETAMINOPHEN [Concomitant]
     Indication: PAIN
     Route: 048
  3. METHOCARBAMOL [Concomitant]
     Indication: MUSCLE SPASMS
     Route: 048

REACTIONS (2)
  - Extra dose administered [Unknown]
  - No adverse event [Unknown]
